FAERS Safety Report 15653497 (Version 1)
Quarter: 2018Q4

REPORT INFORMATION
  Report Type: Spontaneous
  Country: US (occurrence: US)
  Receive Date: 20181124
  Receipt Date: 20181124
  Transmission Date: 20190205
  Serious: Yes (Other)
  Sender: FDA-Public Use
  Company Number: US-TEVA-2018-US-977631

PATIENT
  Sex: Male

DRUGS (2)
  1. TROSPIUM CHLORIDE EXTENDED-RELEASE CAPSULES [Suspect]
     Active Substance: TROSPIUM CHLORIDE
     Indication: HYPERTONIC BLADDER
     Dates: start: 20180402, end: 2018
  2. TROSPIUM CHLORIDE EXTENDED-RELEASE CAPSULES [Suspect]
     Active Substance: TROSPIUM CHLORIDE
     Indication: POLLAKIURIA

REACTIONS (14)
  - Musculoskeletal stiffness [Not Recovered/Not Resolved]
  - Nasal dryness [Not Recovered/Not Resolved]
  - Weight increased [Not Recovered/Not Resolved]
  - Dry throat [Not Recovered/Not Resolved]
  - Regurgitation [Not Recovered/Not Resolved]
  - Rhinorrhoea [Not Recovered/Not Resolved]
  - Headache [Not Recovered/Not Resolved]
  - Oropharyngeal pain [Not Recovered/Not Resolved]
  - Libido decreased [Not Recovered/Not Resolved]
  - Dry mouth [Not Recovered/Not Resolved]
  - Dyspnoea [Not Recovered/Not Resolved]
  - Back pain [Not Recovered/Not Resolved]
  - Dysphagia [Not Recovered/Not Resolved]
  - Ejaculation failure [Not Recovered/Not Resolved]
